FAERS Safety Report 8377767-3 (Version None)
Quarter: 2012Q2

REPORT INFORMATION
  Report Type: 
  Country: None (occurrence: None)
  Receive Date: 20120522
  Receipt Date: 20120418
  Transmission Date: 20120825
  Serious: Yes (Other)
  Sender: FDA-Public Use
  Company Number: JP-PFIZER INC-2012099310

PATIENT
  Age: 81 Year
  Sex: Female

DRUGS (4)
  1. ALDACTONE [Concomitant]
     Dosage: UNK
     Route: 048
  2. CELEBREX [Suspect]
     Indication: BACK PAIN
     Dosage: 200 MG, DAILY
     Route: 048
     Dates: start: 20120302, end: 20120304
  3. CARVEDILOL [Concomitant]
     Dosage: UNK
     Route: 048
  4. WARFARIN [Concomitant]
     Dosage: UNK
     Route: 048

REACTIONS (2)
  - ARRHYTHMIA [None]
  - OLIGURIA [None]
